FAERS Safety Report 18031135 (Version 4)
Quarter: 2025Q3

REPORT INFORMATION
  Report Type: Spontaneous
  Country: EU (occurrence: EU)
  Receive Date: 20200715
  Receipt Date: 20250706
  Transmission Date: 20251020
  Serious: Yes (Death, Other)
  Sender: AUROBINDO
  Company Number: EU-KRKA-PL2020K10757LIT

PATIENT
  Age: 68 Year
  Sex: Female

DRUGS (7)
  1. OMEPRAZOLE [Suspect]
     Active Substance: OMEPRAZOLE
     Indication: Abdominal pain upper
     Route: 065
  2. ATEZOLIZUMAB [Suspect]
     Active Substance: ATEZOLIZUMAB
     Indication: Small cell lung cancer
     Route: 042
  3. CARBOPLATIN [Suspect]
     Active Substance: CARBOPLATIN
     Indication: Small cell lung cancer
     Route: 065
  4. ETOPOSIDE [Suspect]
     Active Substance: ETOPOSIDE
     Indication: Small cell lung cancer
     Route: 065
  5. LEVOTHYROXINE [Suspect]
     Active Substance: LEVOTHYROXINE
     Indication: Hypothyroidism
     Route: 065
  6. METFORMIN [Suspect]
     Active Substance: METFORMIN HYDROCHLORIDE
     Indication: Type 2 diabetes mellitus
     Route: 065
     Dates: start: 2015
  7. ACETAMINOPHEN\TRAMADOL [Suspect]
     Active Substance: ACETAMINOPHEN\TRAMADOL
     Indication: Chest pain
     Route: 065
     Dates: end: 201705

REACTIONS (11)
  - Neutropenia [Fatal]
  - Lung neoplasm malignant [Fatal]
  - Hypokalaemia [Fatal]
  - Anaemia [Fatal]
  - Hypothyroidism [Fatal]
  - Anxiety [Fatal]
  - Blood alkaline phosphatase increased [Fatal]
  - Oedema peripheral [Fatal]
  - Arthralgia [Fatal]
  - Condition aggravated [Fatal]
  - Vomiting [Unknown]
